FAERS Safety Report 7556305-9 (Version None)
Quarter: 2011Q2

REPORT INFORMATION
  Report Type: 
  Country: None (occurrence: None)
  Receive Date: 20110620
  Receipt Date: 20110615
  Transmission Date: 20111010
  Serious: Yes (Other)
  Sender: FDA-Public Use
  Company Number: US-PFIZER INC-2011131633

PATIENT
  Sex: Female
  Weight: 60.317 kg

DRUGS (4)
  1. NASONEX [Concomitant]
     Indication: SINUS DISORDER
     Dosage: UNK
  2. PRISTIQ [Suspect]
     Indication: PANIC ATTACK
  3. PRISTIQ [Suspect]
     Indication: DEPRESSION
     Dosage: 50 MG, 1X/DAY
     Route: 048
     Dates: start: 20100901
  4. CALCIUM [Concomitant]
     Dosage: 600 MG, 1X/DAY

REACTIONS (6)
  - DRUG INEFFECTIVE [None]
  - DEPRESSION [None]
  - HUNGER [None]
  - WEIGHT INCREASED [None]
  - HEADACHE [None]
  - CONSTIPATION [None]
